FAERS Safety Report 9337803 (Version 2)
Quarter: 2013Q4

REPORT INFORMATION
  Report Type: Spontaneous
  Country: US (occurrence: US)
  Receive Date: 20130607
  Receipt Date: 20131018
  Transmission Date: 20140711
  Serious: Yes (Hospitalization, Other)
  Sender: FDA-Public Use
  Company Number: US-009507513-1306USA001824

PATIENT
  Age: 64 Year
  Sex: Female
  Weight: 119.4 kg

DRUGS (10)
  1. PREGNYL [Suspect]
     Indication: WEIGHT DECREASED
     Dosage: 20 SUBLINGUAL DROPS BID
     Route: 060
  2. ENOXAPARIN SODIUM [Suspect]
     Dosage: 120 MG BID
     Route: 058
  3. WARFARIN SODIUM [Suspect]
     Dosage: 5 MG, QD
     Route: 048
  4. CITALOPRAM [Concomitant]
  5. HYDROCHLOROTHIAZIDE [Concomitant]
  6. LANSOPRAZOLE [Concomitant]
  7. POLYETHYLENE GLYCOL [Concomitant]
  8. POTASSIUM (UNSPECIFIED) [Concomitant]
  9. LEVOTHYROXINE SODIUM [Concomitant]
     Route: 048
  10. EZETIMIBE [Concomitant]
     Route: 048

REACTIONS (3)
  - Pulmonary embolism [Recovered/Resolved]
  - Deep vein thrombosis [Recovered/Resolved]
  - Off label use [Unknown]
